FAERS Safety Report 12593411 (Version 1)
Quarter: 2016Q3

REPORT INFORMATION
  Report Type: Spontaneous
  Country: US (occurrence: US)
  Receive Date: 20160726
  Receipt Date: 20160726
  Transmission Date: 20161109
  Serious: No
  Sender: FDA-Public Use
  Company Number: US-ABBVIE-09P-163-0502833-00

PATIENT
  Sex: Female
  Weight: 85.35 kg

DRUGS (5)
  1. SYNTHROID [Suspect]
     Active Substance: LEVOTHYROXINE SODIUM
     Indication: HYPOTHYROIDISM
     Route: 065
     Dates: start: 1989
  2. ATIVAN [Concomitant]
     Active Substance: LORAZEPAM
     Indication: FEELING JITTERY
     Route: 065
     Dates: start: 2008
  3. SYNTHROID [Suspect]
     Active Substance: LEVOTHYROXINE SODIUM
     Route: 065
     Dates: start: 2006
  4. SYNTHROID [Suspect]
     Active Substance: LEVOTHYROXINE SODIUM
     Route: 065
     Dates: start: 2005
  5. SYNTHROID [Suspect]
     Active Substance: LEVOTHYROXINE SODIUM
     Route: 065
     Dates: start: 2007

REACTIONS (9)
  - Nasal polyps [Not Recovered/Not Resolved]
  - Insomnia [Not Recovered/Not Resolved]
  - Tension [Not Recovered/Not Resolved]
  - Blood thyroid stimulating hormone increased [Not Recovered/Not Resolved]
  - Palpitations [Not Recovered/Not Resolved]
  - Blood thyroid stimulating hormone increased [Unknown]
  - Dyspnoea [Not Recovered/Not Resolved]
  - Feeling jittery [Not Recovered/Not Resolved]
  - Ear discomfort [Not Recovered/Not Resolved]

NARRATIVE: CASE EVENT DATE: 2004
